FAERS Safety Report 10024306 (Version 1)
Quarter: 2014Q1

REPORT INFORMATION
  Report Type: Spontaneous
  Country: US (occurrence: None)
  Receive Date: 20140318
  Receipt Date: 20140318
  Transmission Date: 20141002
  Serious: Yes (Other)
  Sender: FDA-Public Use
  Company Number: ADR-2014-00138

PATIENT
  Age: 62 Year
  Sex: Male

DRUGS (10)
  1. LIORESAL [Suspect]
     Indication: MUSCLE SPASTICITY
     Dates: start: 20120321
  2. NEURONTIN [Suspect]
  3. PROTONIX [Suspect]
  4. EFFEXOR [Suspect]
  5. NORVASC [Suspect]
  6. DULCOLAX [Suspect]
  7. ROXICODONE [Suspect]
  8. SEROXAT S [Suspect]
  9. CLOBEVATE [Suspect]
  10. FLUOXETINE [Suspect]

REACTIONS (4)
  - Muscle spasticity [None]
  - Device dislocation [None]
  - Cyst [None]
  - Muscle spasms [None]
